FAERS Safety Report 7950491-4 (Version None)
Quarter: 2011Q4

REPORT INFORMATION
  Report Type: 
  Country: None (occurrence: None)
  Receive Date: 20111130
  Receipt Date: 20111117
  Transmission Date: 20120403
  Serious: Yes (Other)
  Sender: FDA-Public Use
  Company Number: FR-ABBOTT-11P-056-0854030-00

PATIENT
  Age: 78 Year
  Sex: Female

DRUGS (7)
  1. ALPRAZOLAM [Concomitant]
     Indication: PRODUCT USED FOR UNKNOWN INDICATION
  2. ERLOTINIB HYDROCHLORIDE [Interacting]
  3. FENOFIBRATE [Suspect]
     Indication: DYSLIPIDAEMIA
     Route: 048
     Dates: start: 20051201, end: 20101208
  4. ERLOTINIB HYDROCHLORIDE [Interacting]
  5. ESCITALOPRAM [Concomitant]
     Indication: PRODUCT USED FOR UNKNOWN INDICATION
  6. ERLOTINIB HYDROCHLORIDE [Interacting]
     Indication: LUNG NEOPLASM MALIGNANT
     Route: 048
  7. ERLOTINIB HYDROCHLORIDE [Interacting]

REACTIONS (3)
  - DRUG LEVEL DECREASED [None]
  - RASH [None]
  - DRUG INTERACTION [None]
